FAERS Safety Report 9133980 (Version 2)
Quarter: 2013Q1

REPORT INFORMATION
  Report Type: Spontaneous
  Country: US (occurrence: US)
  Receive Date: 20130304
  Receipt Date: 20130329
  Transmission Date: 20140127
  Serious: Yes (Other)
  Sender: FDA-Public Use
  Company Number: US-AMGEN-USASP2013013840

PATIENT
  Age: 62 Year
  Sex: Female
  Weight: 49.89 kg

DRUGS (10)
  1. ENBREL [Suspect]
     Indication: PRODUCT USED FOR UNKNOWN INDICATION
     Dosage: 50 MG, QWK
     Route: 058
  2. FOLIC ACID [Concomitant]
     Dosage: 1 MG, UNK
  3. GABAPENTIN [Concomitant]
     Dosage: 100 MG, UNK
  4. ZOFRAN                             /00955301/ [Concomitant]
     Dosage: 4 MG, UNK
  5. CLONAZEPAM [Concomitant]
     Dosage: 0.5 MG, UNK
  6. VITAMIN D /00107901/ [Concomitant]
     Dosage: 1000 UNIT, UNK
  7. VITAMIN B [Concomitant]
     Dosage: UNK
  8. OMEGA 3                            /01334101/ [Concomitant]
     Dosage: 1000 MG, UNK
  9. ADVIL                              /00044201/ [Concomitant]
     Dosage: 200 MG, UNK
  10. METHOTREXATE [Concomitant]
     Dosage: 1 G, UNK

REACTIONS (1)
  - Diverticulitis [Unknown]
